FAERS Safety Report 11909635 (Version 1)
Quarter: 2016Q1

REPORT INFORMATION
  Report Type: Spontaneous
  Country: US (occurrence: None)
  Receive Date: 20160108
  Receipt Date: 20160108
  Transmission Date: 20160526
  Serious: Yes (Other)
  Sender: FDA-Public Use
  Company Number: 002035994A

PATIENT
  Age: 68 Year
  Sex: Female

DRUGS (1)
  1. IT COSMETICS BYE BYE FOUNDATION SPF 50+ [Suspect]
     Active Substance: TITANIUM DIOXIDE\ZINC OXIDE
     Indication: PROPHYLAXIS AGAINST SOLAR RADIATION
     Dosage: ONCE DERMAL
     Dates: start: 20151201

REACTIONS (3)
  - Swelling face [None]
  - Pharyngeal oedema [None]
  - Rash [None]

NARRATIVE: CASE EVENT DATE: 20151201
